FAERS Safety Report 5852449-8 (Version None)
Quarter: 2008Q3

REPORT INFORMATION
  Report Type: 
  Country: None (occurrence: None)
  Receive Date: 20080820
  Receipt Date: 20080820
  Transmission Date: 20090109
  Serious: Yes (Other)
  Sender: FDA-Public Use
  Company Number: None

PATIENT
  Age: 45 Year
  Sex: Male
  Weight: 120.2032 kg

DRUGS (4)
  1. ATENOLOL [Suspect]
     Indication: ARRHYTHMIA
     Dosage: ONE DAILY
     Dates: start: 20080723
  2. ATENOLOL [Suspect]
     Indication: BLOOD PRESSURE
     Dosage: ONE DAILY
     Dates: start: 20080723
  3. CRESTOR [Concomitant]
  4. QUINAPRIL [Concomitant]

REACTIONS (3)
  - CARDIAC FLUTTER [None]
  - PALPITATIONS [None]
  - PHARMACEUTICAL PRODUCT COMPLAINT [None]
